FAERS Safety Report 7568254-0 (Version None)
Quarter: 2011Q2

REPORT INFORMATION
  Report Type: 
  Country: None (occurrence: None)
  Receive Date: 20110617
  Receipt Date: 20110608
  Transmission Date: 20111010
  Serious: Yes (Other)
  Sender: FDA-Public Use
  Company Number: 2011002040

PATIENT
  Age: 79 Year
  Sex: Male

DRUGS (4)
  1. TARCEVA [Suspect]
     Indication: NON-SMALL CELL LUNG CANCER
     Dosage: 100 MG, UID/QD, ORAL 150 MG, UID/QD, ORAL
     Route: 048
     Dates: start: 20110401, end: 20110428
  2. TARCEVA [Suspect]
     Indication: NON-SMALL CELL LUNG CANCER
     Dosage: 100 MG, UID/QD, ORAL 150 MG, UID/QD, ORAL
     Route: 048
     Dates: start: 20110428
  3. FLOMAX [Concomitant]
  4. MULTI VITAMIN (MULTIPLE VITAMINS) [Concomitant]

REACTIONS (7)
  - DYSPNOEA [None]
  - LYMPHOPENIA [None]
  - DIARRHOEA [None]
  - DECREASED APPETITE [None]
  - RASH [None]
  - DIZZINESS [None]
  - FATIGUE [None]
